FAERS Safety Report 26106214 (Version 1)
Quarter: 2025Q4

REPORT INFORMATION
  Report Type: Report from Study
  Country: US (occurrence: US)
  Receive Date: 20251201
  Receipt Date: 20251201
  Transmission Date: 20260118
  Serious: Yes (Other)
  Sender: ACADIA PHARMACEUTICALS
  Company Number: US-ACADIA PHARMACEUTICALS INC.-ACA-2025-PIM-012686

PATIENT
  Sex: Female

DRUGS (17)
  1. NUPLAZID [Suspect]
     Active Substance: PIMAVANSERIN TARTRATE
     Indication: Parkinson^s disease
     Dosage: 34 MILLIGRAM, QD
     Route: 048
     Dates: start: 20250606
  2. NUPLAZID [Suspect]
     Active Substance: PIMAVANSERIN TARTRATE
     Indication: Hallucination
  3. BENAZEPRIL [Concomitant]
     Active Substance: BENAZEPRIL HYDROCHLORIDE
  4. CALCIUM [Concomitant]
     Active Substance: CALCIUM
  5. FISH OIL [Concomitant]
     Active Substance: FISH OIL
  6. LAMOTRIGINE [Concomitant]
     Active Substance: LAMOTRIGINE
  7. ADULT MULTIVITAMIN [Concomitant]
  8. ROSUVASTATIN [Concomitant]
     Active Substance: ROSUVASTATIN
  9. ESCITALOPRAM [Concomitant]
     Active Substance: ESCITALOPRAM OXALATE
  10. QUETIAPINE [Concomitant]
     Active Substance: QUETIAPINE
  11. NALTREXONE [Concomitant]
     Active Substance: NALTREXONE
  12. DULOXETINE [Concomitant]
     Active Substance: DULOXETINE
  13. CREXONT [Concomitant]
     Active Substance: CARBIDOPA\LEVODOPA
  14. OXYBUTYNIN [Concomitant]
     Active Substance: OXYBUTYNIN
  15. TIZANIDINE [Concomitant]
     Active Substance: TIZANIDINE
  16. PRAMIPEXOLE [Concomitant]
     Active Substance: PRAMIPEXOLE
  17. LATANOPROST [Concomitant]
     Active Substance: LATANOPROST
     Dosage: OPHTHALMIC SOLUTION

REACTIONS (1)
  - Hallucination [Recovered/Resolved]
